FAERS Safety Report 9967951 (Version 1)
Quarter: 2014Q1

REPORT INFORMATION
  Report Type: Report from Study
  Country: US (occurrence: US)
  Receive Date: 20140306
  Receipt Date: 20140306
  Transmission Date: 20141002
  Serious: No
  Sender: FDA-Public Use
  Company Number: US-ABBVIE-13P-163-1147586-00

PATIENT
  Age: 57 Year
  Sex: Male

DRUGS (2)
  1. HUMIRA [Suspect]
     Indication: CROHN^S DISEASE
     Dates: start: 201111
  2. PENTASA [Concomitant]
     Indication: CROHN^S DISEASE
     Dosage: DAILY
     Route: 048
     Dates: end: 201112

REACTIONS (1)
  - Injection site pain [Recovering/Resolving]
